FAERS Safety Report 17875140 (Version 1)
Quarter: 2020Q2

REPORT INFORMATION
  Report Type: Spontaneous
  Country: US (occurrence: US)
  Receive Date: 20200608
  Receipt Date: 20200608
  Transmission Date: 20200714
  Serious: No
  Sender: FDA-Public Use
  Company Number: None

PATIENT
  Sex: Male

DRUGS (8)
  1. MEMANTINE. [Concomitant]
     Active Substance: MEMANTINE
  2. ATORVASTATIN [Concomitant]
     Active Substance: ATORVASTATIN
  3. RIVASTIGMINE. [Concomitant]
     Active Substance: RIVASTIGMINE
  4. AUSTEDO [Suspect]
     Active Substance: DEUTETRABENAZINE
     Indication: HUNTINGTON^S DISEASE
     Route: 048
     Dates: start: 20190929
  5. CARVEDILOL. [Concomitant]
     Active Substance: CARVEDILOL
  6. CLONAZEPAM. [Concomitant]
     Active Substance: CLONAZEPAM
  7. EDARBYCLOR [Concomitant]
     Active Substance: AZILSARTAN KAMEDOXOMIL\CHLORTHALIDONE
  8. FLUOXETINE [Concomitant]
     Active Substance: FLUOXETINE HYDROCHLORIDE

REACTIONS (1)
  - Intracranial aneurysm [None]
